FAERS Safety Report 19232961 (Version 1)
Quarter: 2021Q2

REPORT INFORMATION
  Report Type: Report from Study
  Country: None (occurrence: BR)
  Receive Date: 20210507
  Receipt Date: 20210507
  Transmission Date: 20210717
  Serious: Yes (Other)
  Sender: FDA-Public Use
  Company Number: BR-ABBVIE-21K-020-3890639-00

PATIENT
  Sex: Female
  Weight: 50 kg

DRUGS (9)
  1. BENZATHINE BENZYLPENICILLIN [Suspect]
     Active Substance: PENICILLIN G BENZATHINE
     Indication: PRODUCT USED FOR UNKNOWN INDICATION
     Dosage: UNSPECIFIC DOSE
     Route: 065
  2. AMPICILLIN [Suspect]
     Active Substance: AMPICILLIN
     Indication: PRODUCT USED FOR UNKNOWN INDICATION
     Dosage: UNSPECIFIC DOSE
     Route: 065
  3. HUMIRA [Suspect]
     Active Substance: ADALIMUMAB
     Indication: PSORIASIS
     Dosage: UNSPECIFIC DOSE
     Route: 058
     Dates: start: 20180803, end: 202102
  4. DIOSMIN [Concomitant]
     Active Substance: DIOSMIN
     Indication: PAIN
     Dosage: UNSPECIFIC DOSE
  5. DIOSMIN [Concomitant]
     Active Substance: DIOSMIN
     Indication: CARDIOVASCULAR DISORDER
  6. PREGABALIN. [Concomitant]
     Active Substance: PREGABALIN
     Indication: PAIN
  7. PREGABALIN. [Concomitant]
     Active Substance: PREGABALIN
     Indication: CARDIOVASCULAR DISORDER
  8. ACITRETIN. [Suspect]
     Active Substance: ACITRETIN
     Indication: PRODUCT USED FOR UNKNOWN INDICATION
     Dosage: UNSPECIFIC DOSE
     Route: 065
  9. FERROUS SULFATE. [Suspect]
     Active Substance: FERROUS SULFATE
     Indication: PRODUCT USED FOR UNKNOWN INDICATION
     Dosage: UNSPECIFIC DOSE
     Route: 065

REACTIONS (9)
  - Arthralgia [Unknown]
  - Spinal pain [Unknown]
  - Infection [Unknown]
  - Dermatitis allergic [Unknown]
  - Blister [Unknown]
  - Erythema [Unknown]
  - Poisoning [Unknown]
  - Deformity [Unknown]
  - Pruritus allergic [Unknown]
